FAERS Safety Report 7683448-1 (Version None)
Quarter: 2011Q3

REPORT INFORMATION
  Report Type: 
  Country: None (occurrence: None)
  Receive Date: 20110815
  Receipt Date: 20110810
  Transmission Date: 20111222
  Serious: Yes (Death, Other)
  Sender: FDA-Public Use
  Company Number: PHHY2011US72193

PATIENT
  Age: 43 Year
  Sex: Male

DRUGS (3)
  1. CARBIDOPA + LEVODOPA [Concomitant]
     Indication: PARKINSON'S DISEASE
  2. PRAMIPEXOLE DIHYDROCHLORIDE [Suspect]
     Dosage: 3 MG, UNK
  3. PRAMIPEXOLE DIHYDROCHLORIDE [Suspect]
     Indication: PARKINSON'S DISEASE
     Dosage: 4.5 MG, UNK

REACTIONS (9)
  - COMPLETED SUICIDE [None]
  - ELEVATED MOOD [None]
  - SLEEP DISORDER [None]
  - FLIGHT OF IDEAS [None]
  - HYPOMANIA [None]
  - PSYCHOMOTOR HYPERACTIVITY [None]
  - SUICIDAL IDEATION [None]
  - HYPERSEXUALITY [None]
  - BIPOLAR I DISORDER [None]
